FAERS Safety Report 4591126-0 (Version None)
Quarter: 2005Q1

REPORT INFORMATION
  Report Type: 
  Country: None (occurrence: None)
  Receive Date: 20050222
  Receipt Date: 20050214
  Transmission Date: 20050727
  Serious: Yes (Other)
  Sender: FDA-Public Use
  Company Number: TAP2005Q00280

PATIENT
  Age: 28 Year
  Sex: Male

DRUGS (1)
  1. HP-PAC (LANSOPRAZOLE, CLARITHROMYCIN, AMOXICILLIN) [Suspect]
     Dosage: 1 CARD (0.5 CARD, 2 IN 1 D) PER ORAL
     Route: 048
     Dates: start: 20050211

REACTIONS (4)
  - CHROMATURIA [None]
  - NAUSEA [None]
  - OCULAR ICTERUS [None]
  - VOMITING [None]
